FAERS Safety Report 9232935 (Version 1)
Quarter: 2013Q2

REPORT INFORMATION
  Report Type: Spontaneous
  Country: IT (occurrence: IT)
  Receive Date: 20130416
  Receipt Date: 20130416
  Transmission Date: 20140414
  Serious: Yes (Hospitalization)
  Sender: FDA-Public Use
  Company Number: IT-ELI_LILLY_AND_COMPANY-IT201304001319

PATIENT
  Age: 78 Year
  Sex: Male

DRUGS (6)
  1. ZYPREXA VELOTAB [Suspect]
     Indication: DELIRIUM
     Dosage: 10 MG, QD
     Route: 048
     Dates: start: 20130301, end: 20130308
  2. OMEPRAZOLE [Concomitant]
     Dosage: 20 MG, UNK
     Route: 048
  3. CEFTRIAXONE DISODIUM [Concomitant]
     Dosage: 1 G, UNK
     Route: 042
     Dates: start: 20130224, end: 20130305
  4. ENOXAPARIN SODIUM [Concomitant]
     Dosage: 8000 IU, UNK
     Route: 058
  5. FUROSEMIDE [Concomitant]
     Dosage: 2 DF, UNK
     Route: 048
  6. SEROQUEL [Concomitant]
     Dosage: 50 MG, UNK

REACTIONS (2)
  - Nervousness [Recovered/Resolved]
  - Thinking abnormal [Recovered/Resolved]
